FAERS Safety Report 4719591-6 (Version None)
Quarter: 2005Q3

REPORT INFORMATION
  Report Type: 
  Country: None (occurrence: None)
  Receive Date: 20050721
  Receipt Date: 20040223
  Transmission Date: 20060218
  Serious: No
  Sender: FDA-Public Use
  Company Number: US-GLAXOSMITHKLINE-A0499427A

PATIENT
  Age: 38 Year
  Sex: Female
  Weight: 119.5 kg

DRUGS (8)
  1. AVANDIA [Suspect]
     Dosage: 4MG PER DAY
     Route: 048
     Dates: start: 20030601, end: 20040211
  2. GLUCOPHAGE XR [Concomitant]
     Dates: start: 20030101, end: 20040211
  3. PAXIL [Concomitant]
     Indication: ANXIETY
     Dosage: 60MG PER DAY
     Dates: start: 20030101, end: 20040211
  4. PRINIVIL [Concomitant]
     Indication: HYPERTENSION
     Dates: start: 20030101, end: 20040211
  5. INSULIN [Concomitant]
     Dates: start: 20040212
  6. VITAMIN E [Concomitant]
     Dates: start: 20040212
  7. ASCORBIC ACID [Concomitant]
     Dates: start: 20040212
  8. OMEGA 3 FISH OIL [Concomitant]
     Dates: start: 20040212

REACTIONS (2)
  - NORMAL DELIVERY [None]
  - THERAPEUTIC RESPONSE UNEXPECTED [None]
